FAERS Safety Report 6322652-1 (Version None)
Quarter: 2009Q3

REPORT INFORMATION
  Report Type: 
  Country: None (occurrence: None)
  Receive Date: 20090824
  Receipt Date: 20090217
  Transmission Date: 20100115
  Serious: No
  Sender: FDA-Public Use
  Company Number: US-ABBOTT-09P-163-0558098-00

PATIENT
  Sex: Male
  Weight: 81.72 kg

DRUGS (4)
  1. NIASPAN [Suspect]
     Indication: LIPOPROTEIN (A) DECREASED
     Dates: start: 20020101, end: 20020101
  2. NIASPAN [Suspect]
     Dates: start: 20020101, end: 20070101
  3. NIASPAN [Suspect]
     Dates: start: 20070101
  4. LIPITOR [Concomitant]
     Indication: DRUG USE FOR UNKNOWN INDICATION
     Dosage: NOT REPORTED
     Dates: start: 20010101, end: 20010101

REACTIONS (3)
  - GASTRITIS [None]
  - HYPERCHLORHYDRIA [None]
  - PLATELET COUNT DECREASED [None]
